FAERS Safety Report 25480496 (Version 5)
Quarter: 2025Q3

REPORT INFORMATION
  Report Type: Report from Study
  Country: EU (occurrence: EU)
  Receive Date: 20250625
  Receipt Date: 20250912
  Transmission Date: 20251021
  Serious: Yes (Other)
  Sender: ALEXION PHARMACEUTICALS
  Company Number: EU-ASTRAZENECA-202506EEA018795FR

PATIENT
  Sex: Female

DRUGS (1)
  1. DURVALUMAB [Suspect]
     Active Substance: DURVALUMAB
     Indication: Small cell lung cancer limited stage
     Dosage: 1500 MILLIGRAM, Q4W
     Dates: start: 20250205, end: 20250618

REACTIONS (6)
  - Cardiotoxicity [Unknown]
  - Metastases to lymph nodes [Unknown]
  - Metastases to diaphragm [Unknown]
  - Metastases to liver [Unknown]
  - Metastases to bone [Unknown]
  - Drug effect less than expected [Unknown]
